FAERS Safety Report 9162849 (Version 1)
Quarter: 2013Q1

REPORT INFORMATION
  Report Type: Spontaneous
  Country: US (occurrence: None)
  Receive Date: 20130227
  Receipt Date: 20130227
  Transmission Date: 20140127
  Serious: Yes (Hospitalization, Other)
  Sender: FDA-Public Use
  Company Number: 2013US0076

PATIENT
  Age: 31 Year
  Sex: Female

DRUGS (1)
  1. ANAKINRA [Suspect]
     Indication: STILL^S DISEASE ADULT ONSET

REACTIONS (3)
  - Diarrhoea [None]
  - Melaena [None]
  - Anaemia [None]
